FAERS Safety Report 14260313 (Version 1)
Quarter: 2017Q4

REPORT INFORMATION
  Report Type: Spontaneous
  Country: IT (occurrence: IT)
  Receive Date: 20171207
  Receipt Date: 20171207
  Transmission Date: 20180321
  Serious: Yes (Other)
  Sender: FDA-Public Use
  Company Number: IT-SA-2017SA240966

PATIENT
  Age: 21 Year
  Sex: Female

DRUGS (1)
  1. ALEMTUZUMAB [Suspect]
     Active Substance: ALEMTUZUMAB
     Indication: MULTIPLE SCLEROSIS
     Route: 041
     Dates: start: 201702

REACTIONS (8)
  - Headache [Recovering/Resolving]
  - Neutrophil count decreased [Recovered/Resolved]
  - Listeria test positive [Recovering/Resolving]
  - Vomiting [Recovering/Resolving]
  - Lymphocyte count decreased [Recovered/Resolved]
  - Listeriosis [Recovering/Resolving]
  - C-reactive protein increased [Recovered/Resolved]
  - Pyrexia [Recovering/Resolving]

NARRATIVE: CASE EVENT DATE: 2017
